FAERS Safety Report 6498739-X (Version None)
Quarter: 2009Q4

REPORT INFORMATION
  Report Type: 
  Country: None (occurrence: None)
  Receive Date: 20091127
  Receipt Date: 20090824
  Transmission Date: 20100525
  Serious: Yes (Other)
  Sender: FDA-Public Use
  Company Number: 290878

PATIENT
  Age: 48 Year
  Sex: Male

DRUGS (1)
  1. NOVOLOG MIX 70/30 [Suspect]
     Indication: TYPE 2 DIABETES MELLITUS
     Dosage: 40 IU IN AM AND 40 IU IN PM, BID, SUBCUTANEOUS
     Route: 058
     Dates: start: 20090821, end: 20090823

REACTIONS (3)
  - BLOOD GLUCOSE INCREASED [None]
  - DEVICE MALFUNCTION [None]
  - OVERDOSE [None]
